FAERS Safety Report 7355841-8 (Version None)
Quarter: 2011Q1

REPORT INFORMATION
  Report Type: 
  Country: None (occurrence: None)
  Receive Date: 20110316
  Receipt Date: 20110314
  Transmission Date: 20110831
  Serious: Yes (Hospitalization, Other)
  Sender: FDA-Public Use
  Company Number: FR-BRISTOL-MYERS SQUIBB COMPANY-15606163

PATIENT
  Age: 49 Year
  Sex: Male

DRUGS (3)
  1. REYATAZ [Suspect]
     Indication: HIV INFECTION
     Dates: start: 20060601, end: 20110301
  2. NORVIR [Concomitant]
  3. VIDEX [Suspect]
     Indication: HIV INFECTION
     Dates: start: 20060101, end: 20110301

REACTIONS (3)
  - METABOLIC DISORDER [None]
  - NEPHROLITHIASIS [None]
  - RENAL TUBULAR DISORDER [None]
